FAERS Safety Report 12948265 (Version 2)
Quarter: 2016Q4

REPORT INFORMATION
  Report Type: Spontaneous
  Country: IT (occurrence: IT)
  Receive Date: 20161117
  Receipt Date: 20161129
  Transmission Date: 20170207
  Serious: Yes (Hospitalization, Other)
  Sender: FDA-Public Use
  Company Number: IT-SUN PHARMACEUTICAL INDUSTRIES LTD-2016RR-127021

PATIENT
  Age: 69 Year
  Sex: Male

DRUGS (2)
  1. GEMCITABINE [Suspect]
     Active Substance: GEMCITABINE\GEMCITABINE HYDROCHLORIDE
     Indication: PANCREATIC CARCINOMA
     Dosage: DAYS 1, 8, 15 EVERY 28.
     Route: 065
     Dates: start: 201401
  2. IMATINIB [Suspect]
     Active Substance: IMATINIB
     Indication: PULMONARY FIBROSIS
     Dosage: 100 MG, DAILY
     Route: 065

REACTIONS (2)
  - Acute interstitial pneumonitis [Recovered/Resolved]
  - Off label use [Recovered/Resolved]
